FAERS Safety Report 4501899-0 (Version None)
Quarter: 2004Q4

REPORT INFORMATION
  Report Type: 
  Country: None (occurrence: None)
  Receive Date: 20041109
  Receipt Date: 20041026
  Transmission Date: 20050328
  Serious: Yes (Hospitalization)
  Sender: FDA-Public Use
  Company Number: 2004232670FR

PATIENT
  Sex: Female

DRUGS (8)
  1. CAMPTOSAR [Suspect]
     Indication: COLON CANCER METASTATIC
  2. HALDOL [Suspect]
     Indication: PSYCHOTIC DISORDER
     Dosage: ONCE A MONTH, INTRAMUSCULAR
     Route: 030
  3. NEUROLEPTICS [Concomitant]
  4. ATROPINE [Concomitant]
  5. FLUOROURACIL [Concomitant]
  6. LEUCOVORIN CALCIUM [Concomitant]
  7. KYTRIL [Concomitant]
  8. SOLU-MEDROL (METHYLPREDNISOONE SODIUM SUCCINATE) [Concomitant]

REACTIONS (4)
  - DEHYDRATION [None]
  - DRUG INTERACTION [None]
  - STUPOR [None]
  - VOMITING [None]
